FAERS Safety Report 23207973 (Version 4)
Quarter: 2023Q4

REPORT INFORMATION
  Report Type: Spontaneous
  Country: CA (occurrence: CA)
  Receive Date: 20231121
  Receipt Date: 20231219
  Transmission Date: 20240110
  Serious: Yes (Hospitalization, Other)
  Sender: FDA-Public Use
  Company Number: CA-CELLTRION INC.-2023CA016362

PATIENT

DRUGS (15)
  1. INFLECTRA [Suspect]
     Active Substance: INFLIXIMAB-DYYB
     Indication: Colitis ulcerative
     Dosage: 840 MG (10 MG/KG) AT THE HOSPITAL (WEEK 0), THEN STARTED RECEIVING 900 MG FIXED DOSE STARTING WEEK 2
     Route: 042
     Dates: start: 20230805
  2. INFLECTRA [Suspect]
     Active Substance: INFLIXIMAB-DYYB
     Dosage: 10 MG/KG (900 MG), AT THE HOSPITAL WEEK 0 THEN WEEK 2, 6 AND MAINTENANCE EVERY 8 WEEKS
     Route: 042
     Dates: start: 20230915
  3. INFLECTRA [Suspect]
     Active Substance: INFLIXIMAB-DYYB
     Dosage: 900 MG, 8 WEEK
     Route: 042
     Dates: start: 20231110
  4. INFLECTRA [Suspect]
     Active Substance: INFLIXIMAB-DYYB
     Dosage: 900 MG, EVERY 4 WEEK
     Route: 042
     Dates: start: 20231208
  5. CYCLOSPORINE [Concomitant]
     Active Substance: CYCLOSPORINE
     Dosage: OPHTHALMIC
  6. ESCITALOPRAM [Concomitant]
     Active Substance: ESCITALOPRAM OXALATE
     Dosage: UNK
  7. FENTANYL [Concomitant]
     Active Substance: FENTANYL\FENTANYL CITRATE
     Dosage: UNK
  8. FOLIC ACID [Concomitant]
     Active Substance: FOLIC ACID
     Dosage: UNK
  9. LIFITEGRAST [Concomitant]
     Active Substance: LIFITEGRAST
     Dosage: OPHTHALMIC
  10. METHOTREXATE [Concomitant]
     Active Substance: METHOTREXATE
     Dosage: UNK
  11. METHYLPREDNISOLONE [Concomitant]
     Active Substance: METHYLPREDNISOLONE
     Dosage: 1 DF
  12. MULTIVITAMINS WITH FLUORIDE [ASCORBIC ACID;CALCIUM PANTOTHENATE;CYANOC [Concomitant]
     Dosage: UNK
  13. VITAMIN D3 [Concomitant]
     Active Substance: CHOLECALCIFEROL
     Dosage: UNK
  14. METHYLCOBALAMIN [Concomitant]
     Active Substance: METHYLCOBALAMIN
     Dosage: UNK
  15. VALGANCICLOVIR [Concomitant]
     Active Substance: VALGANCICLOVIR
     Dosage: UNK

REACTIONS (9)
  - Cytomegalovirus infection [Unknown]
  - Clostridium difficile infection [Unknown]
  - Condition aggravated [Not Recovered/Not Resolved]
  - Headache [Recovering/Resolving]
  - Faecal calprotectin increased [Unknown]
  - Illness [Unknown]
  - Bladder spasm [Unknown]
  - Off label use [Unknown]
  - Off label use [Unknown]

NARRATIVE: CASE EVENT DATE: 20230101
